FAERS Safety Report 5820504-4 (Version None)
Quarter: 2008Q3

REPORT INFORMATION
  Report Type: 
  Country: None (occurrence: None)
  Receive Date: 20080724
  Receipt Date: 20070823
  Transmission Date: 20090109
  Serious: No
  Sender: FDA-Public Use
  Company Number: A0676050A

PATIENT
  Sex: Female
  Weight: 90.9 kg

DRUGS (13)
  1. AVANDIA [Suspect]
     Dosage: 20MG TWICE PER DAY
     Route: 048
     Dates: end: 20070701
  2. ACTOS [Concomitant]
  3. GLUCOVANCE [Concomitant]
  4. LANTUS [Concomitant]
  5. CLARITIN [Concomitant]
  6. ZOCOR [Concomitant]
  7. ZESTORETIC [Concomitant]
  8. ASPIRIN [Concomitant]
  9. WELLBUTRIN [Concomitant]
  10. PREVACID [Concomitant]
  11. PREMPRO [Concomitant]
  12. VITAMIN E [Concomitant]
  13. AMBIEN [Concomitant]

REACTIONS (3)
  - AXILLARY MASS [None]
  - FAT TISSUE INCREASED [None]
  - WEIGHT INCREASED [None]
